FAERS Safety Report 8436827-9 (Version None)
Quarter: 2012Q2

REPORT INFORMATION
  Report Type: 
  Country: None (occurrence: None)
  Receive Date: 20120614
  Receipt Date: 20120611
  Transmission Date: 20120825
  Serious: No
  Sender: FDA-Public Use
  Company Number: US-TEVA-342839USA

PATIENT
  Sex: Female

DRUGS (4)
  1. PLAN B ONE-STEP [Suspect]
     Indication: POST COITAL CONTRACEPTION
     Dosage: 1.5 MILLIGRAM;
     Route: 048
  2. LEVONORGESTREL [Suspect]
  3. LEVONORGESTREL [Suspect]
  4. LEVONORGESTREL [Suspect]
     Indication: POST COITAL CONTRACEPTION

REACTIONS (2)
  - MENSTRUATION IRREGULAR [None]
  - ABDOMINAL PAIN [None]
